FAERS Safety Report 9403710 (Version 1)
Quarter: 2013Q3

REPORT INFORMATION
  Report Type: Spontaneous
  Country: US (occurrence: None)
  Receive Date: 20130715
  Receipt Date: 20130715
  Transmission Date: 20140515
  Serious: No
  Sender: FDA-Public Use
  Company Number: None

PATIENT
  Age: 35 Year
  Sex: Male

DRUGS (1)
  1. SOMAVERT [Suspect]
     Indication: MALNUTRITION
     Dosage: 15MGDAILY SQ
     Route: 058
     Dates: start: 20130118

REACTIONS (2)
  - Muscle rupture [None]
  - Tendon rupture [None]
